FAERS Safety Report 14221587 (Version 1)
Quarter: 2017Q4

REPORT INFORMATION
  Report Type: Report from Study
  Country: US (occurrence: US)
  Receive Date: 20171124
  Receipt Date: 20171124
  Transmission Date: 20180321
  Serious: Yes (Hospitalization)
  Sender: FDA-Public Use
  Company Number: US-ACTELION-A-US2016-147370

PATIENT
  Age: 73 Year
  Sex: Male
  Weight: 83.9 kg

DRUGS (6)
  1. VELETRI [Suspect]
     Active Substance: EPOPROSTENOL
     Indication: PULMONARY ARTERIAL HYPERTENSION
     Dosage: 26 NG/KG, PER MIN
     Route: 042
     Dates: start: 20161215
  2. VELETRI [Suspect]
     Active Substance: EPOPROSTENOL
     Dosage: 9.5 NG/KG, PER MIN
     Route: 042
  3. VELETRI [Suspect]
     Active Substance: EPOPROSTENOL
     Dosage: 16.5 NG/KG, PER MIN
     Route: 042
  4. WARFARIN [Concomitant]
     Active Substance: WARFARIN
  5. VELETRI [Suspect]
     Active Substance: EPOPROSTENOL
     Dosage: 14.5 NG/KG, PER MIN
     Route: 042
  6. ADCIRCA [Concomitant]
     Active Substance: TADALAFIL

REACTIONS (19)
  - Terminal state [Unknown]
  - Fluid overload [Unknown]
  - Lower respiratory tract congestion [Unknown]
  - Nausea [Unknown]
  - Dyspnoea [Unknown]
  - Respiratory tract infection [Unknown]
  - Epistaxis [Unknown]
  - Productive cough [Unknown]
  - Diarrhoea [Recovered/Resolved]
  - Headache [Recovering/Resolving]
  - Pain in jaw [Unknown]
  - Chest pain [Unknown]
  - Malaise [Unknown]
  - Nasopharyngitis [Unknown]
  - Nasal congestion [Unknown]
  - Frequent bowel movements [Unknown]
  - Cough [Unknown]
  - Anaemia [Unknown]
  - Tremor [Unknown]

NARRATIVE: CASE EVENT DATE: 201612
